FAERS Safety Report 5187312-1 (Version None)
Quarter: 2006Q4

REPORT INFORMATION
  Report Type: 
  Country: None (occurrence: None)
  Receive Date: 20061214
  Receipt Date: 20061201
  Transmission Date: 20070319
  Serious: Yes (Hospitalization)
  Sender: FDA-Public Use
  Company Number: 2006149743

PATIENT
  Sex: Female

DRUGS (1)
  1. TOLTERODINE TARTRATE [Suspect]
     Indication: BLADDER DISORDER
     Dosage: 4 MG (4  MG, 1 IN 1 D), ORAL
     Route: 048
     Dates: end: 20061101

REACTIONS (4)
  - BLADDER PAIN [None]
  - CYSTITIS [None]
  - LOSS OF CONSCIOUSNESS [None]
  - UTERINE CYST [None]
